FAERS Safety Report 17657288 (Version 2)
Quarter: 2021Q2

REPORT INFORMATION
  Report Type: Spontaneous
  Country: KZ (occurrence: KZ)
  Receive Date: 20200410
  Receipt Date: 20210604
  Transmission Date: 20210716
  Serious: Yes (Other)
  Sender: FDA-Public Use
  Company Number: NVSC2020KZ096729

PATIENT
  Sex: Male

DRUGS (3)
  1. TAFINLAR [Suspect]
     Active Substance: DABRAFENIB MESYLATE
     Dosage: UNK
     Route: 065
  2. TAFINLAR [Suspect]
     Active Substance: DABRAFENIB MESYLATE
     Indication: MALIGNANT MELANOMA
     Dosage: 300 MG, QD
     Route: 065
     Dates: start: 20191212
  3. MEKINIST [Concomitant]
     Active Substance: TRAMETINIB DIMETHYL SULFOXIDE
     Indication: MALIGNANT MELANOMA
     Dosage: 1 DF, QD
     Route: 065

REACTIONS (10)
  - Gastric ulcer [Recovered/Resolved]
  - Hepatic lesion [Unknown]
  - Pulmonary mass [Unknown]
  - Gastric haemorrhage [Recovering/Resolving]
  - Malignant neoplasm progression [Unknown]
  - Malignant melanoma [Unknown]
  - Hepatomegaly [Unknown]
  - Gastric haemorrhage [Recovered/Resolved]
  - Gastric ulcer [Recovering/Resolving]
  - Asthenia [Unknown]

NARRATIVE: CASE EVENT DATE: 202002
